FAERS Safety Report 19874246 (Version 1)
Quarter: 2021Q3

REPORT INFORMATION
  Report Type: Spontaneous
  Country: US (occurrence: US)
  Receive Date: 20210923
  Receipt Date: 20210923
  Transmission Date: 20211014
  Serious: Yes (Hospitalization, Other)
  Sender: FDA-Public Use
  Company Number: US-UNIQUE PHARMACEUTICAL LABORATORIES-20210900074

PATIENT

DRUGS (1)
  1. CETIRIZINE HYDROCHLORIDE UNSPECIFIED [Suspect]
     Active Substance: CETIRIZINE HYDROCHLORIDE
     Indication: RHINITIS ALLERGIC
     Dosage: HEAPING SPOONFUL EQUATED TO BETWEEN 15 AND 20 ML (15?20 MG)

REACTIONS (11)
  - Dry skin [Recovered/Resolved]
  - Flushing [Recovered/Resolved]
  - Anticholinergic syndrome [Recovered/Resolved]
  - Tachypnoea [Recovered/Resolved]
  - Agitation [Recovered/Resolved]
  - Tachycardia [Recovered/Resolved]
  - Hallucination, visual [Recovered/Resolved]
  - Overdose [Recovered/Resolved]
  - Dyskinesia [Recovered/Resolved]
  - Urinary incontinence [Recovered/Resolved]
  - Mydriasis [Recovered/Resolved]
